FAERS Safety Report 13196448 (Version 2)
Quarter: 2017Q1

REPORT INFORMATION
  Report Type: Spontaneous
  Country: CH (occurrence: FR)
  Receive Date: 20170208
  Receipt Date: 20170223
  Transmission Date: 20170428
  Serious: Yes (Other)
  Sender: FDA-Public Use
  Company Number: CH-LPDUSPRD-20170127

PATIENT
  Age: 61 Year
  Sex: Male

DRUGS (1)
  1. VENOFER [Suspect]
     Active Substance: IRON SUCROSE
     Dosage: UNKNOWN DOSE
     Route: 065
     Dates: start: 2014

REACTIONS (1)
  - Mesenteric vein thrombosis [Unknown]

NARRATIVE: CASE EVENT DATE: 201412
